FAERS Safety Report 5855989-0 (Version None)
Quarter: 2008Q3

REPORT INFORMATION
  Report Type: 
  Country: None (occurrence: None)
  Receive Date: 20080825
  Receipt Date: 20080811
  Transmission Date: 20090109
  Serious: Yes (Hospitalization)
  Sender: FDA-Public Use
  Company Number: PHNU2008DE01756

PATIENT
  Sex: Female

DRUGS (6)
  1. RASILEZ [Suspect]
     Indication: HYPERTENSION
     Dosage: 150 MG/D
     Dates: start: 20080101, end: 20080501
  2. IRBESARTAN [Concomitant]
  3. BETA BLOCKING AGENTS [Concomitant]
  4. PLAVIX [Concomitant]
  5. TORSEMIDE [Concomitant]
     Dosage: 10 MG, BID
  6. TORSEMIDE [Concomitant]
     Dosage: 20 MG, BID

REACTIONS (16)
  - BLOOD CREATININE INCREASED [None]
  - BLOOD POTASSIUM INCREASED [None]
  - BLOOD UREA INCREASED [None]
  - CAUTERY TO NOSE [None]
  - CORONARY ANGIOPLASTY [None]
  - COUGH [None]
  - DYSPHONIA [None]
  - EPISTAXIS [None]
  - GLOMERULAR FILTRATION RATE DECREASED [None]
  - GLOMERULONEPHRITIS [None]
  - HAEMATOCRIT DECREASED [None]
  - HAEMOGLOBIN DECREASED [None]
  - NEPHROTIC SYNDROME [None]
  - PROTEINURIA [None]
  - RED BLOOD CELL COUNT DECREASED [None]
  - STENT PLACEMENT [None]
